FAERS Safety Report 7712660-8 (Version None)
Quarter: 2011Q3

REPORT INFORMATION
  Report Type: 
  Country: None (occurrence: None)
  Receive Date: 20110826
  Receipt Date: 20110818
  Transmission Date: 20111222
  Serious: Yes (Congenital Anomaly)
  Sender: FDA-Public Use
  Company Number: US-MERCK-1108USA02412B1

PATIENT
  Age: 0 Day
  Sex: Female

DRUGS (8)
  1. TRUVADA [Suspect]
     Indication: ACUTE HIV INFECTION
     Route: 064
     Dates: start: 20101101
  2. ISENTRESS [Suspect]
     Indication: PERSISTENT GENERALISED LYMPHADENOPATHY
     Route: 064
     Dates: start: 20101101
  3. RETROVIR [Suspect]
     Dosage: 1 MG/KG/HR
     Route: 064
     Dates: start: 20110411, end: 20110412
  4. RETROVIR [Suspect]
     Dosage: 1 MG/KG/HR
     Route: 064
     Dates: start: 20110411, end: 20110412
  5. RETROVIR [Suspect]
     Indication: PERSISTENT GENERALISED LYMPHADENOPATHY
     Dosage: 2 MG/KG/HR
     Route: 064
     Dates: start: 20110411, end: 20110411
  6. ISENTRESS [Suspect]
     Indication: ACUTE HIV INFECTION
     Route: 064
     Dates: start: 20101101
  7. RETROVIR [Suspect]
     Indication: ACUTE HIV INFECTION
     Dosage: 2 MG/KG/HR
     Route: 064
     Dates: start: 20110411, end: 20110411
  8. TRUVADA [Suspect]
     Indication: PERSISTENT GENERALISED LYMPHADENOPATHY
     Route: 064
     Dates: start: 20101101

REACTIONS (2)
  - HYPOSPADIAS [None]
  - MATERNAL EXPOSURE DURING PREGNANCY [None]
